FAERS Safety Report 7197865-X (Version None)
Quarter: 2010Q4

REPORT INFORMATION
  Report Type: 
  Country: None (occurrence: None)
  Receive Date: 20101227
  Receipt Date: 20101215
  Transmission Date: 20110411
  Serious: Yes (Life-Threatening)
  Sender: FDA-Public Use
  Company Number: GB-JNJFOC-20101205688

PATIENT
  Age: 5 Year
  Sex: Male
  Weight: 71 kg

DRUGS (5)
  1. INFLIXIMAB, RECOMBINANT [Suspect]
     Indication: CROHN'S DISEASE
     Dosage: THIRD INFUSION
     Route: 042
  2. INFLIXIMAB, RECOMBINANT [Suspect]
     Dosage: THIRD INFUSION
     Route: 042
  3. HYDROCORTISONE [Concomitant]
     Route: 042
  4. METHOTREXATE [Concomitant]
     Route: 058
  5. PREDNISOLONE [Concomitant]
     Route: 048

REACTIONS (2)
  - ANAPHYLACTIC REACTION [None]
  - INFUSION RELATED REACTION [None]
